FAERS Safety Report 19721053 (Version 1)
Quarter: 2021Q3

REPORT INFORMATION
  Report Type: Spontaneous
  Country: DE (occurrence: DE)
  Receive Date: 20210819
  Receipt Date: 20210819
  Transmission Date: 20211014
  Serious: Yes (Hospitalization, Other)
  Sender: FDA-Public Use
  Company Number: DE-TEVA-2021-DE-1942466

PATIENT
  Age: 75 Year
  Sex: Male
  Weight: 95 kg

DRUGS (3)
  1. CANDESARTAN. [Concomitant]
     Active Substance: CANDESARTAN
     Dosage: 16 MILLIGRAM DAILY; 1?0?0?0
  2. DICLOFENAC [Suspect]
     Active Substance: DICLOFENAC
     Dosage: 75 MG, AS NEEDED
     Route: 065
  3. METAMIZOL [Concomitant]
     Active Substance: METAMIZOLE SODIUM
     Dosage: 500 MILLIGRAM DAILY; 1?0?0?0

REACTIONS (5)
  - Angina pectoris [Unknown]
  - Pain [Unknown]
  - Hypotension [Unknown]
  - Nausea [Unknown]
  - Abdominal pain [Unknown]
